FAERS Safety Report 19889140 (Version 3)
Quarter: 2021Q4

REPORT INFORMATION
  Report Type: Report from Study
  Country: US (occurrence: US)
  Receive Date: 20210927
  Receipt Date: 20211012
  Transmission Date: 20220303
  Serious: Yes (Other)
  Sender: FDA-Public Use
  Company Number: US-JAZZ-JPI-P-028101

PATIENT
  Age: 45 Year
  Sex: Male
  Weight: 77.27 kg

DRUGS (7)
  1. XYREM [Suspect]
     Active Substance: SODIUM OXYBATE
     Indication: Narcolepsy
     Dosage: UNKNOWN DOSE SINGLE DOSE
     Route: 048
     Dates: start: 201102
  2. XYREM [Suspect]
     Active Substance: SODIUM OXYBATE
     Indication: Somnolence
     Dosage: 4.5 GRAM, BID
     Route: 048
     Dates: end: 20111207
  3. XYREM [Suspect]
     Active Substance: SODIUM OXYBATE
     Dosage: 4.5 GRAM
     Route: 048
     Dates: start: 201112
  4. PROPRANOLOL [Concomitant]
     Active Substance: PROPRANOLOL HYDROCHLORIDE
     Indication: Tremor
  5. LANSOPRAZOLE [Concomitant]
     Active Substance: LANSOPRAZOLE
     Indication: Gastrooesophageal reflux disease
  6. LISINOPRIL [Concomitant]
     Active Substance: LISINOPRIL
     Indication: Hypertension
  7. ACYCLOVIR [Concomitant]
     Active Substance: ACYCLOVIR
     Indication: Oral herpes

REACTIONS (4)
  - Intervertebral disc protrusion [Unknown]
  - Condition aggravated [Unknown]
  - Nerve compression [Unknown]
  - Procedural pain [Unknown]

NARRATIVE: CASE EVENT DATE: 20111207
